FAERS Safety Report 5988254-1 (Version None)
Quarter: 2008Q4

REPORT INFORMATION
  Report Type: 
  Country: None (occurrence: None)
  Receive Date: 20081204
  Receipt Date: 20081120
  Transmission Date: 20090506
  Serious: Yes (Hospitalization)
  Sender: FDA-Public Use
  Company Number: KV200800423

PATIENT
  Age: 77 Year
  Sex: Male
  Weight: 127.9 kg

DRUGS (12)
  1. MORPHINE SULFATE [Suspect]
     Indication: GOUT
     Dosage: 15MG, QD, ORAL
     Route: 048
     Dates: start: 20080806, end: 20080801
  2. TRICOR /00499301/ (FENOFIBRATE) [Concomitant]
  3. ROPINIROLE HYDROCHLORIDE [Concomitant]
  4. ALLOPURINOL [Concomitant]
  5. SPIRONOLACTONE [Concomitant]
  6. DIGOXIN [Concomitant]
  7. GABAPENTIN [Concomitant]
  8. POTASSIUM CHLORIDE [Concomitant]
  9. LOVASTATIN (LOVASATIN) [Concomitant]
  10. FUROSEMIDE [Concomitant]
  11. METOPROLOL TARTRATE [Concomitant]
  12. ASPIRIN [Concomitant]

REACTIONS (4)
  - ASTHENIA [None]
  - MENTAL IMPAIRMENT [None]
  - PRODUCT QUALITY ISSUE [None]
  - URINARY INCONTINENCE [None]
